FAERS Safety Report 24695886 (Version 1)
Quarter: 2024Q4

REPORT INFORMATION
  Report Type: Spontaneous
  Country: BR (occurrence: BR)
  Receive Date: 20241204
  Receipt Date: 20241204
  Transmission Date: 20250115
  Serious: Yes (Other)
  Sender: BOEHRINGER INGELHEIM
  Company Number: BR-Komodo Health-a23aa000004Yn0nAAC

PATIENT
  Age: 68 Year
  Sex: Male

DRUGS (6)
  1. LINAGLIPTIN\METFORMIN HYDROCHLORIDE [Suspect]
     Active Substance: LINAGLIPTIN\METFORMIN HYDROCHLORIDE
     Indication: Product used for unknown indication
  2. MICARDIS [Suspect]
     Active Substance: TELMISARTAN
     Indication: Product used for unknown indication
     Dosage: FORM STRENGTH: 80 MILLIGRAMS+5 MILLIGRAMS.
  3. INDAPAMIDE [Concomitant]
     Active Substance: INDAPAMIDE
     Indication: Product used for unknown indication
  4. SIMVASTATIN [Concomitant]
     Active Substance: SIMVASTATIN
     Indication: Product used for unknown indication
  5. DUTAM [Concomitant]
     Indication: Product used for unknown indication
  6. TEGRETOL XR [Concomitant]
     Active Substance: CARBAMAZEPINE
     Indication: Product used for unknown indication

REACTIONS (8)
  - Blindness [Unknown]
  - Seizure [Unknown]
  - Retinal detachment [Unknown]
  - Cataract [Unknown]
  - Diabetes mellitus [Unknown]
  - Memory impairment [Unknown]
  - Hypertension [Unknown]
  - Cataract [Unknown]
